FAERS Safety Report 8267491-X (Version None)
Quarter: 2012Q2

REPORT INFORMATION
  Report Type: 
  Country: None (occurrence: None)
  Receive Date: 20120405
  Receipt Date: 20120405
  Transmission Date: 20120825
  Serious: Yes (Hospitalization)
  Sender: FDA-Public Use
  Company Number: None

PATIENT
  Sex: Male
  Weight: 109 kg

DRUGS (15)
  1. FLONASE [Concomitant]
  2. ENALAPRIL MALEATE AND HYDROCHLOROTHIAZIDE [Concomitant]
  3. AMBIEN [Concomitant]
  4. M.V.I. [Concomitant]
  5. TRAMADOL HCL [Concomitant]
  6. LYRICA [Concomitant]
  7. VITAMIN D [Concomitant]
  8. DULCOLAX [Concomitant]
  9. VERAPAMIL [Concomitant]
  10. ADVIL COLD AND SINUS [Suspect]
     Indication: ARTHRITIS
     Dosage: PO RECENT
  11. ADVIL COLD AND SINUS [Suspect]
     Indication: BURSITIS
     Dosage: PO RECENT
  12. VITAMIN B-12 [Concomitant]
  13. MOTRIN [Suspect]
     Indication: ARTHRITIS
     Dosage: PO RECENT
  14. MOTRIN [Suspect]
     Indication: BURSITIS
     Dosage: PO RECENT
  15. FISH OIL [Concomitant]

REACTIONS (2)
  - GASTROINTESTINAL HAEMORRHAGE [None]
  - HAEMATOCRIT DECREASED [None]
